FAERS Safety Report 16088890 (Version 1)
Quarter: 2019Q2

REPORT INFORMATION
  Report Type: Spontaneous
  Country: US (occurrence: US)
  Receive Date: 20190319
  Receipt Date: 20190319
  Transmission Date: 20190711
  Serious: Yes (Hospitalization)
  Sender: FDA-Public Use
  Company Number: None

PATIENT
  Age: 80 Year
  Sex: Female

DRUGS (10)
  1. LANSOPRAZOLE. [Concomitant]
     Active Substance: LANSOPRAZOLE
  2. LOSARTAN POTASSIUM. [Concomitant]
     Active Substance: LOSARTAN POTASSIUM
  3. ADCIRCA [Suspect]
     Active Substance: TADALAFIL
     Indication: PULMONARY ARTERIAL HYPERTENSION
     Route: 048
     Dates: start: 20160425, end: 20180912
  4. ADCIRCA [Concomitant]
     Active Substance: TADALAFIL
     Dates: start: 20160425, end: 20180925
  5. FUROSEMIDE. [Concomitant]
     Active Substance: FUROSEMIDE
  6. SOTALOL. [Concomitant]
     Active Substance: SOTALOL
  7. DIGOXIN. [Concomitant]
     Active Substance: DIGOXIN
  8. AMLODIPINE [Concomitant]
     Active Substance: AMLODIPINE BESYLATE
  9. TADALAFIL 20MG TABLET [Concomitant]
     Dates: start: 20180926
  10. KLOR-CON [Concomitant]
     Active Substance: POTASSIUM CHLORIDE

REACTIONS (2)
  - Pruritus [None]
  - Atrial fibrillation [None]

NARRATIVE: CASE EVENT DATE: 20180801
